FAERS Safety Report 10928471 (Version 1)
Quarter: 2015Q1

REPORT INFORMATION
  Report Type: Spontaneous
  Country: DE (occurrence: DE)
  Receive Date: 20150319
  Receipt Date: 20150319
  Transmission Date: 20150721
  Serious: Yes (Other)
  Sender: FDA-Public Use
  Company Number: DE-RANBAXY-2015RR-94408

PATIENT
  Sex: Female

DRUGS (1)
  1. CIPRO [Suspect]
     Active Substance: CIPROFLOXACIN HYDROCHLORIDE
     Indication: CYSTITIS NONINFECTIVE
     Dosage: UNK
     Route: 048

REACTIONS (11)
  - Burning sensation [Unknown]
  - Paraesthesia [Unknown]
  - Tinnitus [Unknown]
  - Decreased appetite [Unknown]
  - Arthralgia [Unknown]
  - Nausea [Unknown]
  - Diarrhoea [Unknown]
  - Myalgia [Unknown]
  - Dysgeusia [Unknown]
  - Nightmare [Unknown]
  - Gait disturbance [Unknown]
